FAERS Safety Report 5719068-5 (Version None)
Quarter: 2008Q2

REPORT INFORMATION
  Report Type: 
  Country: None (occurrence: None)
  Receive Date: 20080423
  Receipt Date: 20080407
  Transmission Date: 20081010
  Serious: Yes (Other)
  Sender: FDA-Public Use
  Company Number: 002#8#2008-00244

PATIENT
  Age: 53 Year
  Sex: Male

DRUGS (2)
  1. BACLOFEN [Suspect]
     Indication: MUSCLE SPASTICITY
     Dosage: 5MG,, ORAL
     Route: 048
     Dates: start: 20060101, end: 20060101
  2. BACLOFEN [Suspect]
     Indication: MUSCLE SPASTICITY
     Dosage: 2MG/H,, INTRATHECAL
     Route: 037
     Dates: start: 20060101, end: 20060101

REACTIONS (16)
  - BRADYCARDIA [None]
  - CARDIAC FAILURE [None]
  - CARDIAC OUTPUT DECREASED [None]
  - CONDUCTION DISORDER [None]
  - DELIRIUM [None]
  - FALL [None]
  - HALLUCINATION [None]
  - HYPERTENSION [None]
  - HYPERVENTILATION [None]
  - HYPOTENSION [None]
  - LEFT VENTRICULAR HYPERTROPHY [None]
  - OBSESSIVE THOUGHTS [None]
  - OXYGEN SATURATION DECREASED [None]
  - PACEMAKER GENERATED RHYTHM [None]
  - PARANOIA [None]
  - RESPIRATORY FAILURE [None]
